FAERS Safety Report 5247461-6 (Version None)
Quarter: 2007Q1

REPORT INFORMATION
  Report Type: 
  Country: None (occurrence: None)
  Receive Date: 20070227
  Receipt Date: 20070223
  Transmission Date: 20070707
  Serious: Yes (Hospitalization)
  Sender: FDA-Public Use
  Company Number: IT-BRISTOL-MYERS SQUIBB COMPANY-13691282

PATIENT
  Sex: Male

DRUGS (2)
  1. COUMADIN [Suspect]
  2. ALENDRONATE SODIUM [Suspect]
     Indication: OSTEOPOROSIS
     Route: 048

REACTIONS (2)
  - GASTROINTESTINAL HAEMORRHAGE [None]
  - OESOPHAGITIS [None]
